FAERS Safety Report 9136476 (Version 1)
Quarter: 2013Q1

REPORT INFORMATION
  Report Type: Report from Study
  Country: US (occurrence: US)
  Receive Date: 20130304
  Receipt Date: 20130304
  Transmission Date: 20140127
  Serious: No
  Sender: FDA-Public Use
  Company Number: US-ABBOTT-12P-163-0966158-00

PATIENT
  Sex: Male
  Weight: 143.01 kg

DRUGS (1)
  1. ANDROGEL 1% [Suspect]
     Indication: BLOOD TESTOSTERONE DECREASED
     Dosage: 1%
     Route: 061

REACTIONS (7)
  - Sleep apnoea syndrome [Not Recovered/Not Resolved]
  - Local swelling [Recovered/Resolved]
  - Muscle fatigue [Recovered/Resolved]
  - Arthralgia [Recovered/Resolved]
  - Hair disorder [Not Recovered/Not Resolved]
  - Hair disorder [Not Recovered/Not Resolved]
  - Trichorrhexis [Not Recovered/Not Resolved]
